FAERS Safety Report 6969239-5 (Version None)
Quarter: 2010Q3

REPORT INFORMATION
  Report Type: 
  Country: None (occurrence: None)
  Receive Date: 20100907
  Receipt Date: 20100826
  Transmission Date: 20110219
  Serious: Yes (Hospitalization)
  Sender: FDA-Public Use
  Company Number: US-WYE-H17196910

PATIENT
  Sex: Female

DRUGS (1)
  1. PRISTIQ [Suspect]
     Route: 048

REACTIONS (2)
  - GASTRIC BYPASS [None]
  - WRONG TECHNIQUE IN DRUG USAGE PROCESS [None]
